FAERS Safety Report 9818601 (Version 2)
Quarter: 2014Q1

REPORT INFORMATION
  Report Type: Spontaneous
  Country: None (occurrence: DE)
  Receive Date: 20140115
  Receipt Date: 20140212
  Transmission Date: 20141002
  Serious: Yes (Other)
  Sender: FDA-Public Use
  Company Number: DE-INCYTE CORPORATION-2014IN000069

PATIENT
  Sex: Male

DRUGS (3)
  1. JAKAVI [Suspect]
     Indication: POLYCYTHAEMIA VERA
     Dosage: 5 MG, BID
     Route: 048
     Dates: start: 201109
  2. JAKAVI [Suspect]
     Indication: MYELOFIBROSIS
  3. VISTAGAN /00892902/ [Suspect]
     Dosage: UNK

REACTIONS (2)
  - Neoplasm skin [Recovered/Resolved]
  - Basal cell carcinoma [Unknown]
